FAERS Safety Report 10370592 (Version 1)
Quarter: 2014Q3

REPORT INFORMATION
  Report Type: Spontaneous
  Country: CN (occurrence: CN)
  Receive Date: 20140808
  Receipt Date: 20140808
  Transmission Date: 20150326
  Serious: Yes (Other)
  Sender: FDA-Public Use
  Company Number: CN-ASTELLAS-2014JP016729

PATIENT
  Age: 10 Year
  Sex: Male

DRUGS (2)
  1. HALOMETASONE [Concomitant]
     Active Substance: HALOMETASONE
     Indication: VITILIGO
     Dosage: UNK UNK, ONCE DAILY
     Route: 050
     Dates: start: 2014
  2. PROTOPIC [Suspect]
     Active Substance: TACROLIMUS
     Indication: VITILIGO
     Dosage: UNK UNK, ONCE DAILY
     Route: 061
     Dates: start: 2014

REACTIONS (2)
  - Off label use [Unknown]
  - Epilepsy [Not Recovered/Not Resolved]

NARRATIVE: CASE EVENT DATE: 2014
